FAERS Safety Report 8593423-0 (Version None)
Quarter: 2012Q3

REPORT INFORMATION
  Report Type: 
  Country: None (occurrence: None)
  Receive Date: 20120814
  Receipt Date: 20120808
  Transmission Date: 20120928
  Serious: No
  Sender: FDA-Public Use
  Company Number: US-BAYER-2012-082054

PATIENT
  Age: 49 Year
  Sex: Female
  Weight: 52 kg

DRUGS (2)
  1. ANTIDEPRESSANTS [Concomitant]
  2. ALEVE (CAPLET) [Suspect]
     Dosage: TOOK 12-15 ALEVE CAPLETS
     Route: 048
     Dates: end: 20120808

REACTIONS (1)
  - FATIGUE [None]
